FAERS Safety Report 8187735-2 (Version None)
Quarter: 2012Q1

REPORT INFORMATION
  Report Type: 
  Country: None (occurrence: None)
  Receive Date: 20120306
  Receipt Date: 20120229
  Transmission Date: 20120608
  Serious: Yes (Hospitalization, Other)
  Sender: FDA-Public Use
  Company Number: US-ROCHE-1044330

PATIENT
  Sex: Female

DRUGS (9)
  1. ACETAMINOPHEN [Concomitant]
     Route: 048
  2. COMBIVENT [Concomitant]
  3. CALCIUM NOS/VITAMIN D NOS [Concomitant]
     Route: 048
  4. BONIVA [Suspect]
     Indication: PRODUCT USED FOR UNKNOWN INDICATION
     Route: 048
  5. CLONAZEPAM [Concomitant]
     Route: 048
  6. BUTALBITAL [Concomitant]
     Route: 048
  7. ZOLOFT [Concomitant]
     Route: 048
  8. POTASSIUM GLUCONATE TAB [Concomitant]
     Route: 048
  9. FLAXSEED [Concomitant]

REACTIONS (2)
  - STRESS FRACTURE [None]
  - RIB FRACTURE [None]
